FAERS Safety Report 22161372 (Version 1)
Quarter: 2023Q1

REPORT INFORMATION
  Report Type: Spontaneous
  Country: US (occurrence: US)
  Receive Date: 20230331
  Receipt Date: 20230331
  Transmission Date: 20230417
  Serious: No
  Sender: FDA-Public Use
  Company Number: US-drreddys-SPO/USA/23/0161217

PATIENT
  Sex: Male

DRUGS (1)
  1. SEVELAMER CARBONATE FOR ORAL SUSPENSION [Suspect]
     Active Substance: SEVELAMER CARBONATE
     Indication: Dialysis
     Route: 048
     Dates: start: 20230209, end: 20230209

REACTIONS (1)
  - Treatment noncompliance [Unknown]
